FAERS Safety Report 9466504 (Version 1)
Quarter: 2013Q3

REPORT INFORMATION
  Report Type: Report from Study
  Country: DE (occurrence: DE)
  Receive Date: 20130820
  Receipt Date: 20130820
  Transmission Date: 20140515
  Serious: Yes (Hospitalization)
  Sender: FDA-Public Use
  Company Number: DE-TEVA-425654GER

PATIENT
  Age: 66 Year
  Sex: Female
  Weight: 64 kg

DRUGS (6)
  1. FLUOROURACIL [Suspect]
     Indication: BREAST CANCER
     Route: 042
     Dates: start: 20100224, end: 20100407
  2. EPIRUBICIN HCL [Suspect]
     Indication: BREAST CANCER
     Route: 042
     Dates: start: 20100224, end: 20100407
  3. EPIRUBICIN HCL [Suspect]
  4. AROMASIN [Suspect]
     Indication: BREAST CANCER
     Route: 048
     Dates: start: 20100707
  5. ASS [Concomitant]
  6. CIPRALEX [Concomitant]

REACTIONS (1)
  - Syncope [Recovered/Resolved]
